FAERS Safety Report 5292016-0 (Version None)
Quarter: 2007Q2

REPORT INFORMATION
  Report Type: 
  Country: None (occurrence: None)
  Receive Date: 20070410
  Receipt Date: 20070328
  Transmission Date: 20071010
  Serious: Yes (Hospitalization, Other)
  Sender: FDA-Public Use
  Company Number: JP-NOVOPROD-261259

PATIENT
  Age: 55 Year
  Sex: Male

DRUGS (5)
  1. GLUCAGON [Suspect]
     Indication: ENDOSCOPY UPPER GASTROINTESTINAL TRACT
     Dosage: 1 MG, UNK
     Route: 030
     Dates: start: 20061218, end: 20061218
  2. GASCON [Concomitant]
     Indication: ENDOSCOPY
     Dosage: 2 ML, UNK
     Route: 048
     Dates: start: 20061218, end: 20061218
  3. PRONASE MS [Concomitant]
     Indication: ENDOSCOPY
     Dosage: 20000 UT, UNK
     Route: 048
     Dates: start: 20061218, end: 20061218
  4. XYLOCAINE                          /00033402/ [Concomitant]
     Indication: ENDOSCOPY
     Dosage: 10 ML, UNK
     Dates: end: 20061218
  5. SODIUM BICARBONATE [Concomitant]
     Indication: DRUG USE FOR UNKNOWN INDICATION

REACTIONS (2)
  - JAW FRACTURE [None]
  - LOSS OF CONSCIOUSNESS [None]
